FAERS Safety Report 6381232-2 (Version None)
Quarter: 2009Q3

REPORT INFORMATION
  Report Type: 
  Country: None (occurrence: None)
  Receive Date: 20090929
  Receipt Date: 20090922
  Transmission Date: 20100115
  Serious: Yes (Other)
  Sender: FDA-Public Use
  Company Number: US-GILEAD-2009-0024432

PATIENT
  Sex: Female

DRUGS (16)
  1. LETAIRIS [Suspect]
     Indication: PULMONARY ARTERIAL HYPERTENSION
     Route: 048
  2. TORSEMIDE [Concomitant]
  3. MICARDIS [Concomitant]
  4. SPIRONOLACTONE [Concomitant]
  5. FLURAZEPAM [Concomitant]
  6. GEODON [Concomitant]
  7. FLUOXETINE [Concomitant]
  8. ADVAIR DISKUS 100/50 [Concomitant]
  9. SPIRIVA [Concomitant]
  10. PROAIR HFA [Concomitant]
  11. NOVOLOG [Concomitant]
  12. LANTUS [Concomitant]
  13. FISH OIL [Concomitant]
  14. VITAMIN B-12 [Concomitant]
  15. M.V.I. [Concomitant]
  16. CALCIUM [Concomitant]

REACTIONS (2)
  - BLOOD CREATININE INCREASED [None]
  - OROPHARYNGEAL PAIN [None]
